FAERS Safety Report 18071072 (Version 1)
Quarter: 2020Q3

REPORT INFORMATION
  Report Type: Spontaneous
  Country: US (occurrence: US)
  Receive Date: 20200724
  Receipt Date: 20200724
  Transmission Date: 20201103
  Serious: Yes (Hospitalization)
  Sender: FDA-Public Use
  Company Number: None

PATIENT
  Age: 59 Year
  Sex: Female
  Weight: 74.25 kg

DRUGS (11)
  1. CLONAZEPAM 1MG [Concomitant]
     Active Substance: CLONAZEPAM
  2. BISACODYL USP 5MG [Concomitant]
  3. PANTOPRAZOLE SODIUM 20MG [Concomitant]
  4. BLUMEN ADVANCED INSTANT HAND SANITIZER CLEAR [Suspect]
     Active Substance: ALCOHOL
     Indication: COVID-19 PROPHYLAXIS
     Dosage: ?          OTHER STRENGTH:NOT APPLICABLE;OTHER FREQUENCY:AS NEEDED/REQUIRED;?
     Route: 061
     Dates: start: 20200320, end: 20200724
  5. LORATADINE TABLETS [Concomitant]
     Active Substance: LORATADINE
  6. WELLBUTRIN (BUPROPION HCL ER XL 150 MG) [Concomitant]
  7. FLUOXETINE HCL [Concomitant]
     Active Substance: FLUOXETINE HYDROCHLORIDE
  8. BARIATRIC MULTIVITAMIN [Concomitant]
  9. ACETAMINOPHEN CAPLETS 500MG [Concomitant]
  10. STIMULANT LAXATIVE [Concomitant]
     Active Substance: BISACODYL
  11. NATURES BOUNTY HAIR, SKIN AND NAILS GUMMIES [Concomitant]

REACTIONS (9)
  - Asthenia [None]
  - Loss of consciousness [None]
  - Therapy non-responder [None]
  - Disorientation [None]
  - Product complaint [None]
  - Dizziness [None]
  - Cold sweat [None]
  - Recalled product administered [None]
  - Dissociation [None]

NARRATIVE: CASE EVENT DATE: 20200711
